FAERS Safety Report 25129821 (Version 1)
Quarter: 2025Q1

REPORT INFORMATION
  Report Type: Spontaneous
  Country: AT (occurrence: AT)
  Receive Date: 20250327
  Receipt Date: 20250327
  Transmission Date: 20250408
  Serious: Yes (Other)
  Sender: GILEAD
  Company Number: AT-GILEAD-2025-0707918

PATIENT
  Sex: Male

DRUGS (1)
  1. YESCARTA [Suspect]
     Active Substance: AXICABTAGENE CILOLEUCEL
     Indication: Diffuse large B-cell lymphoma
     Route: 065
     Dates: start: 20220727, end: 20220727

REACTIONS (4)
  - Neutropenia [Recovered/Resolved]
  - Cytokine release syndrome [Unknown]
  - Anaemia [Unknown]
  - Thrombocytopenia [Unknown]
